FAERS Safety Report 9124158 (Version 1)
Quarter: 2013Q1

REPORT INFORMATION
  Report Type: Spontaneous
  Country: GB (occurrence: GB)
  Receive Date: 20130116
  Receipt Date: 20130116
  Transmission Date: 20140127
  Serious: Yes (Other)
  Sender: FDA-Public Use
  Company Number: GB-PFIZER INC-2013014595

PATIENT
  Age: 8 Decade
  Sex: Female

DRUGS (1)
  1. LYRICA [Suspect]
     Indication: ANXIETY
     Dosage: UNK

REACTIONS (3)
  - Delirium [Not Recovered/Not Resolved]
  - Dementia [Not Recovered/Not Resolved]
  - Confusional state [Not Recovered/Not Resolved]
